FAERS Safety Report 14626238 (Version 2)
Quarter: 2018Q2

REPORT INFORMATION
  Report Type: Report from Study
  Country: FR (occurrence: FR)
  Receive Date: 20180312
  Receipt Date: 20180524
  Transmission Date: 20180711
  Serious: Yes (Death, Life-Threatening, Hospitalization)
  Sender: FDA-Public Use
  Company Number: FR-PFIZER INC-2018097210

PATIENT
  Age: 66 Year
  Sex: Female
  Weight: 120 kg

DRUGS (5)
  1. FLUOROURACIL. [Suspect]
     Active Substance: FLUOROURACIL
     Dosage: 4650 MG, CYCLIC
     Route: 041
     Dates: start: 20150811
  2. FLUOROURACIL. [Suspect]
     Active Substance: FLUOROURACIL
     Indication: COLORECTAL CANCER METASTATIC
     Dosage: 770 MG, CYCLIC
     Route: 040
     Dates: start: 20150811, end: 20150811
  3. IRINOTECAN HCL [Suspect]
     Active Substance: IRINOTECAN HYDROCHLORIDE
     Indication: COLORECTAL CANCER METASTATIC
     Dosage: 285 MG, CYCLIC
     Route: 041
     Dates: start: 20150811
  4. CALCIUM FOLINATE [Suspect]
     Active Substance: LEUCOVORIN CALCIUM
     Indication: COLORECTAL CANCER METASTATIC
     Dosage: 386 MG, CYCLIC
     Route: 041
     Dates: start: 20150811
  5. ZALTRAP [Suspect]
     Active Substance: ZIV-AFLIBERCEPT
     Indication: COLORECTAL CANCER METASTATIC
     Dosage: 360 MG, CYCLIC
     Route: 041
     Dates: start: 20150811, end: 20150811

REACTIONS (7)
  - Anxiety [Not Recovered/Not Resolved]
  - Hyperkalaemia [Recovered/Resolved]
  - Neoplasm progression [Fatal]
  - Oedema peripheral [Not Recovered/Not Resolved]
  - Nausea [Not Recovered/Not Resolved]
  - Hypoglycaemia [Not Recovered/Not Resolved]
  - Abdominal pain upper [Not Recovered/Not Resolved]

NARRATIVE: CASE EVENT DATE: 201508
